APPROVED DRUG PRODUCT: CAPECITABINE
Active Ingredient: CAPECITABINE
Strength: 150MG
Dosage Form/Route: TABLET;ORAL
Application: A200483 | Product #001
Applicant: HIKMA PHARMACEUTICALS USA INC
Approved: Jul 14, 2016 | RLD: No | RS: No | Type: DISCN